FAERS Safety Report 9954143 (Version 1)
Quarter: 2014Q1

REPORT INFORMATION
  Report Type: Spontaneous
  Country: GB (occurrence: GB)
  Receive Date: 20140304
  Receipt Date: 20140304
  Transmission Date: 20141002
  Serious: Yes (Other)
  Sender: FDA-Public Use
  Company Number: GB-009507513-1403GBR000463

PATIENT
  Age: 77 Year
  Sex: Female
  Weight: 69.85 kg

DRUGS (7)
  1. ALENDRONATE SODIUM [Suspect]
     Indication: JOINT INJURY
     Dosage: 70 MG, QW
     Route: 048
     Dates: start: 2006, end: 20140219
  2. ALENDRONATE SODIUM [Suspect]
     Indication: PROPHYLAXIS
  3. AMITRIPTYLINE HYDROCHLORIDE [Concomitant]
  4. ADCAL-D3 [Concomitant]
  5. AMLODIPINE [Concomitant]
  6. NASACORT [Concomitant]
  7. ACETAMINOPHEN [Concomitant]

REACTIONS (2)
  - Femur fracture [Unknown]
  - Incorrect drug administration duration [Unknown]
